FAERS Safety Report 13370884 (Version 1)
Quarter: 2017Q1

REPORT INFORMATION
  Report Type: Spontaneous
  Country: JP (occurrence: JP)
  Receive Date: 20170324
  Receipt Date: 20170324
  Transmission Date: 20170429
  Serious: Yes (Death)
  Sender: FDA-Public Use
  Company Number: JP-PFIZER INC-2017127679

PATIENT
  Age: 82 Year
  Sex: Male

DRUGS (39)
  1. ELPLAT [Suspect]
     Active Substance: OXALIPLATIN
     Dosage: 100 MG/M2, 1X/DAY
     Route: 041
  2. LEVOFOLINATE [Suspect]
     Active Substance: LEVOLEUCOVORIN CALCIUM
     Dosage: 220 MG, 1X/DAY
     Route: 041
     Dates: start: 20161204, end: 20161204
  3. 5-FU /00098801/ [Suspect]
     Active Substance: FLUOROURACIL
     Dosage: 460 MG, 1X/DAY
     Route: 040
     Dates: start: 20161214, end: 20161214
  4. 5-FU /00098801/ [Suspect]
     Active Substance: FLUOROURACIL
     Dosage: 2500 MG, ONCE IN 2DAYS
     Route: 041
     Dates: start: 20161214, end: 20161214
  5. TS-1 [Suspect]
     Active Substance: GIMERACIL\OTERACIL\TEGAFUR
     Indication: COLON CANCER
     Dosage: 30 MG, 2X/DAY
     Route: 048
     Dates: start: 201602, end: 2016
  6. ZOSYN [Concomitant]
     Active Substance: PIPERACILLIN SODIUM\TAZOBACTAM SODIUM
     Dosage: UNK
     Dates: start: 20170104, end: 20170126
  7. CAMPTO [Suspect]
     Active Substance: IRINOTECAN
     Dosage: 170 MG, 1X/DAY
     Route: 041
     Dates: start: 20161214, end: 20161214
  8. ELPLAT [Suspect]
     Active Substance: OXALIPLATIN
     Dosage: 100 MG/M2, 1X/DAY
     Route: 041
  9. 5-FU /00098801/ [Suspect]
     Active Substance: FLUOROURACIL
     Dosage: 2500 MG, ONCE IN 2DAYS
     Route: 041
     Dates: start: 20161031, end: 20161031
  10. 5-FU /00098801/ [Suspect]
     Active Substance: FLUOROURACIL
     Dosage: 460 MG, 1X/DAY
     Route: 040
  11. SOL-MELCORT [Concomitant]
     Active Substance: METHYLPREDNISOLONE SODIUM SUCCINATE
     Dosage: UNK
     Dates: start: 20161229, end: 20170106
  12. TS-1 [Suspect]
     Active Substance: GIMERACIL\OTERACIL\TEGAFUR
     Dosage: 40 MG, 2X/DAY
     Route: 048
  13. FUNGUARD [Concomitant]
     Active Substance: MICAFUNGIN SODIUM
     Dosage: UNK
     Dates: start: 20170121, end: 20170126
  14. ELPLAT [Suspect]
     Active Substance: OXALIPLATIN
     Dosage: 100 MG/M2, 1X/DAY
     Route: 041
  15. ELPLAT [Suspect]
     Active Substance: OXALIPLATIN
     Dosage: 100 MG/M2, 1X/DAY
     Route: 041
  16. TS-1 [Suspect]
     Active Substance: GIMERACIL\OTERACIL\TEGAFUR
     Dosage: 40 MG, 2X/DAY
     Route: 048
  17. PREDONINE /00016204/ [Concomitant]
     Active Substance: PREDNISOLONE ACETATE
     Dosage: UNK
     Dates: start: 20170107, end: 20170126
  18. ELPLAT [Suspect]
     Active Substance: OXALIPLATIN
     Dosage: 100 MG, 1X/DAY
     Route: 041
  19. ELPLAT [Suspect]
     Active Substance: OXALIPLATIN
     Dosage: 100 MG/M2, 1X/DAY
     Route: 041
  20. ELPLAT [Suspect]
     Active Substance: OXALIPLATIN
     Dosage: 100 MG, 1X/DAY
     Route: 041
  21. CEFOTIAM [Concomitant]
     Active Substance: CEFOTIAM
     Dosage: UNK
     Dates: start: 20161226, end: 20170103
  22. ELPLAT [Suspect]
     Active Substance: OXALIPLATIN
     Indication: COLON CANCER
     Dosage: 100 MG/M2, 1X/DAY
     Route: 041
     Dates: start: 201602
  23. 5-FU /00098801/ [Suspect]
     Active Substance: FLUOROURACIL
     Dosage: 460 MG, 1X/DAY
     Route: 040
     Dates: start: 20161128, end: 20161128
  24. 5-FU /00098801/ [Suspect]
     Active Substance: FLUOROURACIL
     Dosage: 2500 MG, ONCE IN 2DAYS
     Route: 041
     Dates: start: 20161128, end: 20161128
  25. CAMPTO [Suspect]
     Active Substance: IRINOTECAN
     Dosage: 170 MG, 1X/DAY
     Route: 041
     Dates: start: 20161114, end: 20161114
  26. ELPLAT [Suspect]
     Active Substance: OXALIPLATIN
     Dosage: 100 MG/M2, 1X/DAY
     Route: 041
  27. ELPLAT [Suspect]
     Active Substance: OXALIPLATIN
     Dosage: 100 MG, 1X/DAY
     Route: 041
  28. LEVOFOLINATE [Suspect]
     Active Substance: LEVOLEUCOVORIN CALCIUM
     Indication: COLON CANCER
     Dosage: 200 MG, 1X/DAY
     Route: 041
     Dates: start: 20161031, end: 20161031
  29. LEVOFOLINATE [Suspect]
     Active Substance: LEVOLEUCOVORIN CALCIUM
     Dosage: 220 MG, 1X/DAY
     Route: 041
     Dates: start: 20161128, end: 20161128
  30. 5-FU /00098801/ [Suspect]
     Active Substance: FLUOROURACIL
     Indication: COLON CANCER
     Dosage: 460 MG, 1X/DAY
     Route: 040
     Dates: start: 20161031, end: 20161031
  31. CAMPTO [Suspect]
     Active Substance: IRINOTECAN
     Indication: COLON CANCER
     Dosage: 170 MG, 1X/DAY
     Route: 041
     Dates: start: 20161031, end: 20161031
  32. CAMPTO [Suspect]
     Active Substance: IRINOTECAN
     Dosage: 170 MG, 1X/DAY
     Route: 041
     Dates: start: 20161128, end: 20161128
  33. ELPLAT [Suspect]
     Active Substance: OXALIPLATIN
     Dosage: 100 MG/M2, 1X/DAY
     Route: 041
  34. ELPLAT [Suspect]
     Active Substance: OXALIPLATIN
     Dosage: 100 MG/M2, 1X/DAY
     Route: 041
  35. LEVOFOLINATE [Suspect]
     Active Substance: LEVOLEUCOVORIN CALCIUM
     Dosage: 220 MG, 1X/DAY
     Route: 041
     Dates: start: 20161114, end: 20161114
  36. 5-FU /00098801/ [Suspect]
     Active Substance: FLUOROURACIL
     Dosage: 2500 MG, ONCE IN 2DAYS
     Route: 041
     Dates: start: 20161114, end: 20161114
  37. TS-1 [Suspect]
     Active Substance: GIMERACIL\OTERACIL\TEGAFUR
     Dosage: 40 MG, 2X/DAY
     Route: 048
  38. TS-1 [Suspect]
     Active Substance: GIMERACIL\OTERACIL\TEGAFUR
     Dosage: 40 MG, 2X/DAY
     Route: 048
  39. SIVELESTAT [Concomitant]
     Active Substance: SIVELESTAT
     Dosage: UNK
     Dates: start: 20170117, end: 20170126

REACTIONS (1)
  - Interstitial lung disease [Fatal]

NARRATIVE: CASE EVENT DATE: 20161226
